FAERS Safety Report 10268356 (Version 1)
Quarter: 2014Q2

REPORT INFORMATION
  Report Type: Spontaneous
  Country: JP (occurrence: JP)
  Receive Date: 20140630
  Receipt Date: 20140630
  Transmission Date: 20141212
  Serious: Yes (Hospitalization, Other)
  Sender: FDA-Public Use
  Company Number: JP-ASTELLAS-2014JP011362

PATIENT
  Sex: 0

DRUGS (2)
  1. PROTOPIC [Suspect]
     Indication: PRODUCT USED FOR UNKNOWN INDICATION
     Route: 061
  2. ANTI ALLERGIC AGENTS [Concomitant]
     Indication: PRODUCT USED FOR UNKNOWN INDICATION
     Route: 065

REACTIONS (5)
  - Generalised oedema [Unknown]
  - Cardiac failure [Unknown]
  - Diarrhoea [Unknown]
  - Ascites [Unknown]
  - Pleural effusion [Unknown]
